FAERS Safety Report 8608625-4 (Version None)
Quarter: 2012Q3

REPORT INFORMATION
  Report Type: 
  Country: None (occurrence: None)
  Receive Date: 20120803
  Receipt Date: 20120720
  Transmission Date: 20120928
  Serious: Yes (Hospitalization)
  Sender: FDA-Public Use
  Company Number: AC0-31263_2012

PATIENT
  Age: 59 Year
  Sex: Male

DRUGS (5)
  1. CLONAZEPAM [Concomitant]
  2. ALPRAZOLAM [Concomitant]
  3. PERINDOPRIL ERBUMINE [Concomitant]
  4. AMPYRA [Suspect]
     Indication: MULTIPLE SCLEROSIS
     Dosage: 10 MG, BID, ORAL
     Route: 048
     Dates: start: 20120521
  5. SIPRALEXA /01588501/ (ESCITALOPRAM) [Concomitant]

REACTIONS (2)
  - ABDOMINAL PAIN [None]
  - CHOLECYSTECTOMY [None]
